FAERS Safety Report 8086424-2 (Version None)
Quarter: 2012Q1

REPORT INFORMATION
  Report Type: 
  Country: None (occurrence: None)
  Receive Date: 20120128
  Receipt Date: 20110510
  Transmission Date: 20120608
  Serious: No
  Sender: FDA-Public Use
  Company Number: US-ABBOTT-11P-163-0724934-00

PATIENT
  Sex: Male

DRUGS (3)
  1. HUMIRA [Suspect]
     Dosage: ONCE AT DAY 8
  2. HUMIRA [Suspect]
     Indication: PSORIASIS
     Dates: start: 20110401, end: 20110401
  3. HUMIRA [Suspect]

REACTIONS (2)
  - LYMPHANGITIS [None]
  - LYMPHADENOPATHY [None]
